FAERS Safety Report 9472988 (Version 2)
Quarter: 2013Q3

REPORT INFORMATION
  Report Type: Spontaneous
  Country: US (occurrence: US)
  Receive Date: 20130823
  Receipt Date: 20130823
  Transmission Date: 20140515
  Serious: Yes (Other)
  Sender: FDA-Public Use
  Company Number: US-BRISTOL-MYERS SQUIBB COMPANY-17309139

PATIENT
  Age: 35 Year
  Sex: Female
  Weight: 97.96 kg

DRUGS (4)
  1. SPRYCEL [Suspect]
     Indication: CHRONIC MYELOID LEUKAEMIA
     Route: 048
     Dates: start: 201212
  2. ZYRTEC [Concomitant]
  3. FERROUS SULFATE [Concomitant]
  4. TAMIFLU [Concomitant]

REACTIONS (6)
  - Cardiac flutter [Unknown]
  - Flushing [Unknown]
  - Rash [Unknown]
  - Hair colour changes [Unknown]
  - Hyperthyroidism [Unknown]
  - Weight decreased [Unknown]
